FAERS Safety Report 7285524-4 (Version None)
Quarter: 2011Q1

REPORT INFORMATION
  Report Type: 
  Country: None (occurrence: None)
  Receive Date: 20110210
  Receipt Date: 20110127
  Transmission Date: 20110831
  Serious: Yes (Other)
  Sender: FDA-Public Use
  Company Number: MA-SANOFI-AVENTIS-2011SA005750

PATIENT

DRUGS (5)
  1. METRONIDAZOLE [Suspect]
     Route: 065
  2. FLUOROQUINOLONES [Suspect]
  3. BETA-LACTAM ANTIBACTERIALS, PENICILLINS [Suspect]
  4. PARACETAMOL [Suspect]
  5. TEGRETOL [Suspect]

REACTIONS (1)
  - ACUTE GENERALISED EXANTHEMATOUS PUSTULOSIS [None]
